FAERS Safety Report 12653477 (Version 1)
Quarter: 2016Q3

REPORT INFORMATION
  Report Type: Report from Study
  Country: IE (occurrence: IE)
  Receive Date: 20160815
  Receipt Date: 20160815
  Transmission Date: 20161109
  Serious: Yes (Death, Life-Threatening)
  Sender: FDA-Public Use
  Company Number: IE-009507513-1608IRL004917

PATIENT
  Age: 57 Year
  Sex: Male
  Weight: 103 kg

DRUGS (3)
  1. SENOKOT (SENNOSIDES) [Concomitant]
     Dosage: UNK
     Route: 048
     Dates: start: 20160527
  2. TEMOZOLOMIDE. [Suspect]
     Active Substance: TEMOZOLOMIDE
     Indication: GLIOBLASTOMA MULTIFORME
     Dosage: 75 MG/M2, DAY 1 TO DAY 5 OF 28-DAY CYCLE X 6 CYCLES
     Route: 048
     Dates: start: 20160518, end: 20160622
  3. ONDANSETRON HYDROCHLORIDE. [Concomitant]
     Active Substance: ONDANSETRON HYDROCHLORIDE
     Dosage: 8 MG, QD
     Dates: start: 20160518

REACTIONS (1)
  - Death [Fatal]

NARRATIVE: CASE EVENT DATE: 20160718
